FAERS Safety Report 8835241 (Version 3)
Quarter: 2012Q4

REPORT INFORMATION
  Report Type: Report from Study
  Country: US (occurrence: US)
  Receive Date: 20121011
  Receipt Date: 20121025
  Transmission Date: 20130627
  Serious: Yes (Hospitalization, Disabling, Other)
  Sender: FDA-Public Use
  Company Number: US-JNJFOC-20121005675

PATIENT
  Age: 15 Year
  Sex: Male
  Weight: 30.9 kg

DRUGS (2)
  1. REMICADE [Suspect]
     Indication: INFLAMMATORY BOWEL DISEASE
     Route: 042
     Dates: start: 20100813, end: 20120619
  2. METHOTREXATE [Concomitant]

REACTIONS (1)
  - Optic neuritis [Recovered/Resolved]
